FAERS Safety Report 4412828-2 (Version None)
Quarter: 2004Q3

REPORT INFORMATION
  Report Type: 
  Country: None (occurrence: None)
  Receive Date: 20040730
  Receipt Date: 20040730
  Transmission Date: 20050211
  Serious: Yes (Hospitalization)
  Sender: FDA-Public Use
  Company Number: None

PATIENT
  Age: 85 Year
  Sex: Male
  Weight: 77.7 kg

DRUGS (10)
  1. METOPROLOL [Suspect]
     Indication: HYPERTENSION
     Dosage: 25 MG BID
     Dates: start: 20030916, end: 20040401
  2. HYDROCHLOROTHIAZIDE [Concomitant]
  3. LOVASTATIN [Concomitant]
  4. FLUOXETINE HCL [Concomitant]
  5. GLYBURIDE [Concomitant]
  6. TERAZOSIN HCL [Concomitant]
  7. DONEPEZIL HCL [Concomitant]
  8. FELODIPINE [Concomitant]
  9. OXYBUTYNIN CHLORIDE [Concomitant]
  10. POTASSIUM CHLORIDE [Concomitant]

REACTIONS (1)
  - BRADYCARDIA [None]
